FAERS Safety Report 4492050-4 (Version None)
Quarter: 2004Q4

REPORT INFORMATION
  Report Type: 
  Country: None (occurrence: None)
  Receive Date: 20041103
  Receipt Date: 20041019
  Transmission Date: 20050328
  Serious: Yes (Hospitalization)
  Sender: FDA-Public Use
  Company Number: US-AMGEN-US096091

PATIENT
  Sex: Female

DRUGS (2)
  1. ENBREL [Suspect]
     Indication: REITER'S SYNDROME
     Route: 058
     Dates: start: 20040818, end: 20040927
  2. METHOTREXATE [Concomitant]
     Dates: start: 19940101

REACTIONS (1)
  - HEPATITIS [None]
